FAERS Safety Report 4459824-7 (Version None)
Quarter: 2004Q3

REPORT INFORMATION
  Report Type: 
  Country: None (occurrence: None)
  Receive Date: 20040928
  Receipt Date: 20040510
  Transmission Date: 20050211
  Serious: No
  Sender: FDA-Public Use
  Company Number: US-BRISTOL-MYERS SQUIBB COMPANY-12583589

PATIENT
  Age: 36 Year
  Sex: Male
  Weight: 73 kg

DRUGS (1)
  1. AMOXICILLIN [Suspect]
     Indication: GASTRIC ULCER
     Dosage: THERAPY 4 OR 5 DAYS. NDC#00003-0109-60
     Route: 048
     Dates: start: 20040415, end: 20040401

REACTIONS (2)
  - OEDEMA PERIPHERAL [None]
  - SWELLING [None]
